FAERS Safety Report 15470104 (Version 1)
Quarter: 2018Q4

REPORT INFORMATION
  Report Type: Spontaneous
  Country: US (occurrence: US)
  Receive Date: 20181005
  Receipt Date: 20181005
  Transmission Date: 20190205
  Serious: No
  Sender: FDA-Public Use
  Company Number: US-BAUSCH-BL-2014-005773

PATIENT
  Sex: Female

DRUGS (1)
  1. MAXAIR AUTOHALER [Suspect]
     Active Substance: PIRBUTEROL ACETATE
     Indication: ASTHMA
     Dosage: AS NEEDED

REACTIONS (2)
  - Product container issue [Unknown]
  - Limb injury [Unknown]
